FAERS Safety Report 9351610 (Version 1)
Quarter: 2013Q2

REPORT INFORMATION
  Report Type: Spontaneous
  Country: US (occurrence: US)
  Receive Date: 20130617
  Receipt Date: 20130617
  Transmission Date: 20140414
  Serious: Yes (Death)
  Sender: FDA-Public Use
  Company Number: US-GILEAD-2013-0076742

PATIENT
  Age: 75 Year
  Sex: Female

DRUGS (5)
  1. VISTIDE [Suspect]
     Indication: RESPIRATORY PAPILLOMA
     Dosage: UNK
     Route: 042
     Dates: start: 200403
  2. CARBOPLATIN [Concomitant]
     Indication: SQUAMOUS CELL CARCINOMA
  3. 5-FU                               /00098801/ [Concomitant]
     Indication: SQUAMOUS CELL CARCINOMA
  4. PEG INF [Concomitant]
     Dosage: 50 ?G, Q1WK
     Dates: start: 200402
  5. INDOLE-3-CARBINOL [Concomitant]
     Dosage: 400 MG, QD
     Route: 048

REACTIONS (1)
  - Drug ineffective [Fatal]
